FAERS Safety Report 18872609 (Version 1)
Quarter: 2021Q1

REPORT INFORMATION
  Report Type: Spontaneous
  Country: US (occurrence: US)
  Receive Date: 20210209
  Receipt Date: 20210209
  Transmission Date: 20210420
  Serious: Yes (Death)
  Sender: FDA-Public Use
  Company Number: None

PATIENT
  Age: 70 Year
  Sex: Male

DRUGS (8)
  1. ANORO ELLIPTA [Concomitant]
     Active Substance: UMECLIDINIUM BROMIDE\VILANTEROL TRIFENATATE
  2. SILDENAFIL 20MG TAB [Suspect]
     Active Substance: SILDENAFIL
     Indication: PULMONARY ARTERIAL HYPERTENSION
     Route: 048
     Dates: start: 20191030, end: 20210208
  3. NEO/POLY/DEX [Suspect]
     Active Substance: DEXAMETHASONE\NEOMYCIN\POLYMYXIN B SULFATE
  4. FUROSEMIDE. [Suspect]
     Active Substance: FUROSEMIDE
  5. TIZANIDINE. [Suspect]
     Active Substance: TIZANIDINE
  6. CLOPIDOGREL [Suspect]
     Active Substance: CLOPIDOGREL BISULFATE
  7. ATORVASTATIN [Suspect]
     Active Substance: ATORVASTATIN
  8. METHYLPRED [Suspect]
     Active Substance: METHYLPREDNISOLONE

REACTIONS (1)
  - Death [None]

NARRATIVE: CASE EVENT DATE: 20210208
